FAERS Safety Report 21019677 (Version 3)
Quarter: 2025Q4

REPORT INFORMATION
  Report Type: Spontaneous
  Country: US (occurrence: US)
  Receive Date: 20220628
  Receipt Date: 20251103
  Transmission Date: 20260118
  Serious: Yes (Other)
  Sender: SANOFI AVENTIS
  Company Number: US-SA-SAC20220627000845

PATIENT
  Sex: Male
  Weight: 89.55 kg

DRUGS (3)
  1. DUPIXENT [Suspect]
     Active Substance: DUPILUMAB
     Indication: Rheumatoid arthritis
     Dosage: 300 MG, QOW
     Route: 058
  2. DUPIXENT [Suspect]
     Active Substance: DUPILUMAB
     Indication: Dermatitis atopic
  3. ORGOVYX [Concomitant]
     Active Substance: RELUGOLIX

REACTIONS (3)
  - Prostate cancer [Unknown]
  - COVID-19 [Unknown]
  - Product use in unapproved indication [Unknown]
